FAERS Safety Report 7823241-X (Version None)
Quarter: 2011Q4

REPORT INFORMATION
  Report Type: 
  Country: None (occurrence: None)
  Receive Date: 20111019
  Receipt Date: 20111006
  Transmission Date: 20120403
  Serious: Yes (Hospitalization)
  Sender: FDA-Public Use
  Company Number: US-RANBAXY-2011US-49179

PATIENT
  Age: 58 Year
  Sex: Male

DRUGS (2)
  1. GABAPENTIN [Suspect]
     Indication: PAIN
     Dosage: 900 MG, TID
     Route: 065
  2. KETAMINE HCL [Interacting]
     Indication: GENERAL ANAESTHESIA
     Dosage: 100 MG, UNK
     Route: 042

REACTIONS (2)
  - DRUG INTERACTION [None]
  - DEPRESSED LEVEL OF CONSCIOUSNESS [None]
